FAERS Safety Report 8391418-3 (Version None)
Quarter: 2012Q2

REPORT INFORMATION
  Report Type: 
  Country: None (occurrence: None)
  Receive Date: 20120523
  Receipt Date: 20120518
  Transmission Date: 20120825
  Serious: Yes (Life-Threatening, Hospitalization, Other)
  Sender: FDA-Public Use
  Company Number: 2012SP014624

PATIENT
  Age: 32 Year
  Sex: Female
  Weight: 67.1324 kg

DRUGS (4)
  1. IMPLANON [Suspect]
     Indication: CONTRACEPTION
     Dosage: 1 DF;SBDE
     Route: 059
     Dates: start: 20110128
  2. PROZAC [Concomitant]
  3. HUMALOG [Concomitant]
  4. PROZAC [Concomitant]

REACTIONS (10)
  - TACHYCARDIA [None]
  - BLEEDING ANOVULATORY [None]
  - HAEMOGLOBIN DECREASED [None]
  - ASTHENIA [None]
  - MENORRHAGIA [None]
  - ALOPECIA [None]
  - OVARIAN CYST [None]
  - PYREXIA [None]
  - BLOOD GLUCOSE INCREASED [None]
  - DIZZINESS [None]
